FAERS Safety Report 4379379-5 (Version None)
Quarter: 2004Q2

REPORT INFORMATION
  Report Type: 
  Country: None (occurrence: None)
  Receive Date: 20040615
  Receipt Date: 20040601
  Transmission Date: 20050107
  Serious: Yes (Life-Threatening)
  Sender: FDA-Public Use
  Company Number: UKO04000102

PATIENT
  Age: 45 Year
  Sex: Female

DRUGS (2)
  1. WICK VAPORUB SALBE [Suspect]
     Indication: NASOPHARYNGITIS
     Dosage: 2 VAPORS, TWICE/DAY, NASAL
     Route: 055
     Dates: start: 20040528, end: 20040529
  2. COLDARGAN (CALCIUM LAEVULINATE, EPHEDRINE LAEVULINATE, SILVER PROTEIN, [Concomitant]

REACTIONS (4)
  - CHOKING [None]
  - DYSPNOEA [None]
  - HYPERSENSITIVITY [None]
  - OROPHARYNGEAL SWELLING [None]
